FAERS Safety Report 24565313 (Version 1)
Quarter: 2024Q4

REPORT INFORMATION
  Report Type: Spontaneous
  Country: ES (occurrence: ES)
  Receive Date: 20241030
  Receipt Date: 20241030
  Transmission Date: 20250115
  Serious: Yes (Other)
  Sender: AVERITAS
  Company Number: ES-GRUNENTHAL-2024-135507

PATIENT
  Age: 71 Year
  Sex: Male

DRUGS (13)
  1. QUTENZA [Suspect]
     Active Substance: CAPSAICIN
     Indication: Trigeminal neuralgia
     Dosage: UNK
     Route: 003
  2. TAPENTADOL [Interacting]
     Active Substance: TAPENTADOL
     Indication: Trigeminal neuralgia
     Dosage: 25 MILLIGRAM, EVERY 12 HRS
     Route: 065
  3. TEDIZOLID [Interacting]
     Active Substance: TEDIZOLID
     Indication: Meningitis bacterial
     Dosage: UNK
     Route: 065
  4. OXCARBAZEPINE [Concomitant]
     Active Substance: OXCARBAZEPINE
     Indication: Trigeminal neuralgia
     Dosage: 600 MILLIGRAM, EVERY 8 HRS
     Route: 065
  5. GABAPENTIN [Concomitant]
     Active Substance: GABAPENTIN
     Indication: Trigeminal neuralgia
     Dosage: 300 MILLIGRAM, EVERY 8 HRS
     Route: 065
  6. CLONAZEPAM [Concomitant]
     Active Substance: CLONAZEPAM
     Indication: Trigeminal neuralgia
     Dosage: 0.5 MILLIGRAM, 1/DAY
     Route: 065
  7. AMITRIPTYLINE [Concomitant]
     Active Substance: AMITRIPTYLINE
     Indication: Trigeminal neuralgia
     Dosage: 10 MILLIGRAM, 1/DAY
     Route: 065
  8. COTRIMOXAZOLE [Concomitant]
     Active Substance: SULFAMETHOXAZOLE\TRIMETHOPRIM
     Indication: Antibiotic prophylaxis
     Dosage: UNK
     Route: 065
  9. DEXAMETHASONE [Concomitant]
     Active Substance: DEXAMETHASONE
     Dosage: 4 MILLIGRAM
     Route: 065
  10. MEROPENEM [Concomitant]
     Active Substance: MEROPENEM
     Indication: Meningitis bacterial
     Dosage: UNK
     Route: 065
  11. CEFTAROLINE [Concomitant]
     Active Substance: CEFTAROLINE
     Indication: Meningitis bacterial
     Dosage: UNK
     Route: 065
  12. DIAZEPAM [Concomitant]
     Active Substance: DIAZEPAM
     Dosage: 2.5 MILLIGRAM, EVERY 12 HRS
     Route: 048
  13. CYPROHEPTADINE [Concomitant]
     Active Substance: CYPROHEPTADINE
     Dosage: UNK

REACTIONS (4)
  - Serotonin syndrome [Unknown]
  - Drug interaction [Unknown]
  - Drug ineffective [Unknown]
  - Product administered at inappropriate site [Unknown]
